FAERS Safety Report 6310668-0 (Version None)
Quarter: 2009Q3

REPORT INFORMATION
  Report Type: 
  Country: None (occurrence: None)
  Receive Date: 20090810
  Receipt Date: 20090730
  Transmission Date: 20100115
  Serious: Yes (Other)
  Sender: FDA-Public Use
  Company Number: 340865

PATIENT
  Age: 52 Year
  Sex: Female
  Weight: 86.6 kg

DRUGS (4)
  1. (METHYLTHIONNIUM CHLORIDE) [Suspect]
     Indication: PARATHYROIDECTOMY
     Dosage: 7.5 MQ/KG,  INTRAVENOUS DRIP
     Route: 041
  2. VENLAFAXINE HYDROCHLORIDE [Suspect]
     Indication: DEPRESSION
     Dosage: ORAL
     Route: 048
  3. (MELIEVERINE) [Concomitant]
  4. FERROUS SULFATE TAB [Concomitant]

REACTIONS (9)
  - APHASIA [None]
  - BLOOD CALCIUM DECREASED [None]
  - CONFUSIONAL STATE [None]
  - DELAYED RECOVERY FROM ANAESTHESIA [None]
  - DISINHIBITION [None]
  - DRUG INTERACTION [None]
  - DRUG TOXICITY [None]
  - INCORRECT DOSE ADMINISTERED [None]
  - NYSTAGMUS [None]
